FAERS Safety Report 7889238 (Version 4)
Quarter: 2014Q2

REPORT INFORMATION
  Report Type: Spontaneous
  Country: US (occurrence: US)
  Receive Date: 20110407
  Receipt Date: 20140425
  Transmission Date: 20141212
  Serious: Yes (Hospitalization, Other)
  Sender: FDA-Public Use
  Company Number: US-JNJFOC-20110310069

PATIENT
  Age: 54 Year
  Sex: Female
  Weight: 68.95 kg

DRUGS (20)
  1. REMICADE [Suspect]
     Indication: RHEUMATOID ARTHRITIS
     Route: 042
     Dates: start: 20110119, end: 20130119
  2. REMICADE [Suspect]
     Indication: RHEUMATOID ARTHRITIS
     Dosage: 4.5 MG/KG
     Route: 042
     Dates: start: 20041008
  3. REMICADE [Suspect]
     Indication: RHEUMATOID ARTHRITIS
     Route: 042
     Dates: end: 20100927
  4. COLACE [Concomitant]
  5. SOLU-MEDROL [Concomitant]
     Indication: PREMEDICATION
     Route: 065
     Dates: start: 20060828, end: 20110119
  6. BEXTRA [Concomitant]
     Route: 065
     Dates: start: 2004
  7. PLAQUENIL [Concomitant]
     Route: 065
     Dates: start: 2004
  8. MVI [Concomitant]
     Route: 065
     Dates: start: 2004
  9. CALCIUM [Concomitant]
     Route: 065
     Dates: start: 2004
  10. BENADRYL [Concomitant]
     Indication: PREMEDICATION
     Route: 065
     Dates: start: 20060828, end: 20110119
  11. METHOTREXATE [Concomitant]
     Route: 065
     Dates: start: 20080812, end: 20110119
  12. FOLIC ACID [Concomitant]
     Route: 065
     Dates: start: 20080812, end: 20110119
  13. LORAZEPAM [Concomitant]
     Route: 065
     Dates: start: 20110620, end: 20120207
  14. ONDANSETRON [Concomitant]
     Route: 065
     Dates: start: 20110620, end: 20120207
  15. ALLOPURINOL [Concomitant]
     Route: 065
     Dates: start: 20110620, end: 20120207
  16. OXYCODONE [Concomitant]
     Route: 065
     Dates: start: 20110620, end: 20120207
  17. CYMBALTA [Concomitant]
     Route: 065
     Dates: start: 20120207
  18. CARVEDILOL [Concomitant]
     Route: 065
  19. AZULFIDINE [Concomitant]
     Route: 065
     Dates: start: 2004, end: 20070129
  20. AZULFIDINE [Concomitant]
     Route: 065
     Dates: start: 20070129

REACTIONS (3)
  - Diffuse large B-cell lymphoma stage IV [Recovered/Resolved]
  - Pericardial effusion [Recovered/Resolved]
  - Pleural effusion [Recovered/Resolved]
